FAERS Safety Report 8577187-2 (Version None)
Quarter: 2012Q3

REPORT INFORMATION
  Report Type: 
  Country: None (occurrence: None)
  Receive Date: 20120807
  Receipt Date: 20120730
  Transmission Date: 20120928
  Serious: Yes (Other)
  Sender: FDA-Public Use
  Company Number: US-BAXTER-2012BAX011656

PATIENT
  Sex: Male

DRUGS (2)
  1. DIANEAL [Suspect]
     Indication: PERITONEAL DIALYSIS
     Route: 033
  2. PREDNISONE TAB [Suspect]
     Route: 065

REACTIONS (2)
  - IMMUNOSUPPRESSION [None]
  - PERITONITIS BACTERIAL [None]
